FAERS Safety Report 22311656 (Version 16)
Quarter: 2025Q1

REPORT INFORMATION
  Report Type: Report from Study
  Country: US (occurrence: US)
  Receive Date: 20230511
  Receipt Date: 20250213
  Transmission Date: 20250409
  Serious: Yes (Hospitalization)
  Sender: ABBVIE
  Company Number: US-ABBVIE-4761479

PATIENT
  Age: 45 Year
  Sex: Female

DRUGS (8)
  1. HUMIRA [Suspect]
     Active Substance: ADALIMUMAB
     Indication: Colitis ulcerative
     Dosage: 0.8 MG/ML DOSE: 40
     Route: 058
     Dates: start: 20170509, end: 202002
  2. CYMBALTA [Concomitant]
     Active Substance: DULOXETINE HYDROCHLORIDE
     Indication: Depression
     Route: 048
     Dates: start: 20161223
  3. TRAZODONE HCL [Concomitant]
     Active Substance: TRAZODONE HYDROCHLORIDE
     Indication: Depression
     Route: 048
     Dates: start: 20161223
  4. PROBIOTICS NOS [Concomitant]
     Active Substance: PROBIOTICS NOS
     Indication: Colitis ulcerative
     Route: 048
     Dates: start: 20160829
  5. FLEXERIL [Concomitant]
     Active Substance: CYCLOBENZAPRINE HYDROCHLORIDE
     Indication: Pain
     Route: 048
     Dates: start: 20180108
  6. FIORICET [Concomitant]
     Active Substance: ACETAMINOPHEN\BUTALBITAL\CAFFEINE
     Indication: Headache
     Route: 048
     Dates: start: 20180108
  7. MAXALT [Concomitant]
     Active Substance: RIZATRIPTAN BENZOATE
     Indication: Migraine
     Route: 048
     Dates: start: 20180108
  8. ADULT MULTIVITAMIN [Concomitant]
     Indication: Nutritional supplementation
     Route: 048
     Dates: start: 20161223

REACTIONS (2)
  - Cervical radiculopathy [Recovered/Resolved]
  - Incomplete spinal fusion [Recovered/Resolved]

NARRATIVE: CASE EVENT DATE: 20220516
